FAERS Safety Report 23919995 (Version 1)
Quarter: 2024Q2

REPORT INFORMATION
  Report Type: Spontaneous
  Country: NL (occurrence: NL)
  Receive Date: 20240530
  Receipt Date: 20240530
  Transmission Date: 20240715
  Serious: Yes (Hospitalization)
  Sender: FDA-Public Use
  Company Number: None

PATIENT
  Age: 63 Year
  Sex: Female

DRUGS (1)
  1. RIZATRIPTAN [Suspect]
     Active Substance: RIZATRIPTAN
     Indication: Migraine
     Dosage: 1 A2 / DAY. SEVERAL DAYS IN A ROW, MELTS 10MG / RIZATRIPTAN TEVA
     Route: 065
     Dates: start: 20240410, end: 20240414

REACTIONS (2)
  - Status migrainosus [Recovered/Resolved]
  - Product substitution issue [Unknown]
